FAERS Safety Report 7557559-5 (Version None)
Quarter: 2011Q2

REPORT INFORMATION
  Report Type: 
  Country: None (occurrence: None)
  Receive Date: 20110620
  Receipt Date: 20110609
  Transmission Date: 20111010
  Serious: Yes (Hospitalization)
  Sender: FDA-Public Use
  Company Number: FR-ASTRAZENECA-2011SE35750

PATIENT
  Age: 83 Year
  Sex: Female

DRUGS (10)
  1. AMITRIPTYLINE HCL [Concomitant]
     Route: 048
  2. LAMALINE [Concomitant]
  3. ATACAND [Suspect]
     Route: 048
     Dates: end: 20110515
  4. OXAZEPAM [Concomitant]
  5. FRACTAL [Concomitant]
  6. ASPIRIN [Concomitant]
  7. FUROSEMIDE [Suspect]
     Route: 048
     Dates: end: 20110515
  8. SOTALOL HCL [Suspect]
     Route: 048
     Dates: end: 20110515
  9. MIANSERINE [Suspect]
     Route: 048
     Dates: end: 20110515
  10. ORBENIN CAP [Suspect]
     Indication: INFLAMMATION OF WOUND
     Route: 048
     Dates: start: 20110509, end: 20110514

REACTIONS (3)
  - SYNCOPE [None]
  - BRADYCARDIA [None]
  - HYPOTENSION [None]
